FAERS Safety Report 13232119 (Version 1)
Quarter: 2017Q1

REPORT INFORMATION
  Report Type: Spontaneous
  Country: GB (occurrence: GB)
  Receive Date: 20170214
  Receipt Date: 20170214
  Transmission Date: 20170428
  Serious: Yes (Disabling, Other)
  Sender: FDA-Public Use
  Company Number: GB-MYLANLABS-2017M1008588

PATIENT

DRUGS (9)
  1. THIAMINE. [Concomitant]
     Active Substance: THIAMINE
     Dates: start: 20161101, end: 20161109
  2. OMEPRAZOLE. [Concomitant]
     Active Substance: OMEPRAZOLE
     Dosage: AT LUNCHTIME
     Dates: start: 20161101
  3. SALBUTAMOL [Concomitant]
     Active Substance: ALBUTEROL
     Dosage: 1 TO 2 PUFFS UP TO FOUR TIMES DAILY.
     Route: 055
     Dates: start: 20161101
  4. WARFARIN [Concomitant]
     Active Substance: WARFARIN
     Dosage: AS DIRECTED IN YELLOW BOOK
     Dates: start: 20161026
  5. ATORVASTATIN [Suspect]
     Active Substance: ATORVASTATIN
     Dosage: 40 MG, UNK
  6. DIGOXIN. [Concomitant]
     Active Substance: DIGOXIN
     Dosage: IN MORNING.
     Dates: start: 20161101
  7. COCODAMOL [Concomitant]
     Active Substance: ACETAMINOPHEN\CODEINE PHOSPHATE
     Dosage: 1-2 CAPSULES UP TO FOUR TIMES DAILY, 300MG/ 500MG
     Dates: start: 20161104
  8. TRIMETHOPRIM. [Concomitant]
     Active Substance: TRIMETHOPRIM
     Dates: start: 20161114
  9. IPRATROPIUM BROMIDE. [Concomitant]
     Active Substance: IPRATROPIUM BROMIDE
     Dosage: PUFF
     Route: 055
     Dates: start: 20161101

REACTIONS (3)
  - Mobility decreased [Recovering/Resolving]
  - Condition aggravated [Recovered/Resolved]
  - Cognitive disorder [Recovered/Resolved]

NARRATIVE: CASE EVENT DATE: 20160701
